FAERS Safety Report 16004218 (Version 1)
Quarter: 2019Q1

REPORT INFORMATION
  Report Type: Spontaneous
  Country: US (occurrence: US)
  Receive Date: 20190225
  Receipt Date: 20190225
  Transmission Date: 20190418
  Serious: Yes (Other)
  Sender: FDA-Public Use
  Company Number: None

PATIENT
  Age: 31 Year
  Sex: Female
  Weight: 74.25 kg

DRUGS (4)
  1. VICKS VAPOCOOL MENTHOL ORAL ANESTHETIC COOL BLUE [Suspect]
     Active Substance: MENTHOL
     Indication: OROPHARYNGEAL PAIN
     Dosage: ?          QUANTITY:1 DROP(S);?
     Route: 048
     Dates: start: 20190223, end: 20190224
  2. VICKS VAPOCOOL MENTHOL ORAL ANESTHETIC COOL BLUE [Suspect]
     Active Substance: MENTHOL
     Indication: THROAT CLEARING
     Dosage: ?          QUANTITY:1 DROP(S);?
     Route: 048
     Dates: start: 20190223, end: 20190224
  3. EQUATE COMPLETE MULTIVITAMIN [Concomitant]
     Active Substance: VITAMINS
  4. ADIPEX-P [Concomitant]
     Active Substance: PHENTERMINE HYDROCHLORIDE

REACTIONS (5)
  - Dysphonia [None]
  - Dysphagia [None]
  - Pharyngeal oedema [None]
  - Pharyngeal inflammation [None]
  - Oropharyngeal pain [None]

NARRATIVE: CASE EVENT DATE: 20190224
